FAERS Safety Report 8956826 (Version 1)
Quarter: 2012Q4

REPORT INFORMATION
  Report Type: Spontaneous
  Country: GB (occurrence: None)
  Receive Date: 20121128
  Receipt Date: 20121128
  Transmission Date: 20130627
  Serious: Yes (Disabling, Other)
  Sender: FDA-Public Use
  Company Number: AUR-APL-2012-04917

PATIENT
  Age: 54 Year
  Sex: Female

DRUGS (4)
  1. RIBAVIRIN [Suspect]
     Indication: HEPATITIS C
     Dosage: (1 D)
     Route: 048
     Dates: start: 20120625
  2. INTRONA [Suspect]
     Indication: HEPATITIS C
     Dosage: (1 in 1 wk)
     Route: 058
     Dates: start: 20120625
  3. TELAPREVIR [Suspect]
     Indication: HEPATITIS C
     Dosage: (750 mg, 3 in 1 D)
     Route: 048
     Dates: start: 20120625
  4. AMITRIPTYLINE HYDROCHLORIDE [Suspect]
     Indication: DRUG USE FOR UNKNOWN INDICATION
     Dates: start: 20120625

REACTIONS (8)
  - Rectal haemorrhage [None]
  - Wheezing [None]
  - Cough [None]
  - Insomnia [None]
  - Dyspnoea [None]
  - Proctalgia [None]
  - Headache [None]
  - Nausea [None]
